FAERS Safety Report 9218196 (Version 1)
Quarter: 2013Q2

REPORT INFORMATION
  Report Type: Spontaneous
  Country: DE (occurrence: DE)
  Receive Date: 20130408
  Receipt Date: 20130408
  Transmission Date: 20140414
  Serious: Yes (Other)
  Sender: FDA-Public Use
  Company Number: GXKR2013DE001346

PATIENT
  Sex: Female

DRUGS (5)
  1. AMITRIPTYLINE [Suspect]
     Indication: ANALGESIC THERAPY
     Route: 048
  2. SERTRALINE [Suspect]
     Indication: ANALGESIC THERAPY
     Dosage: 50 MG, UNK
     Route: 048
  3. SERTRALINE [Suspect]
     Dosage: 100 MG, UNK
  4. VALORON [Suspect]
     Indication: ANALGESIC THERAPY
     Route: 048
  5. KATADOLON [Suspect]
     Indication: ANALGESIC THERAPY
     Dosage: UNK UKN, UNK
     Route: 048

REACTIONS (3)
  - Optic atrophy [Not Recovered/Not Resolved]
  - Scotoma [Not Recovered/Not Resolved]
  - Visual acuity reduced [Not Recovered/Not Resolved]
